FAERS Safety Report 7325392-5 (Version None)
Quarter: 2011Q1

REPORT INFORMATION
  Report Type: 
  Country: None (occurrence: None)
  Receive Date: 20110302
  Receipt Date: 20110222
  Transmission Date: 20110831
  Serious: Yes (Other)
  Sender: FDA-Public Use
  Company Number: US-US-EMD SERONO, INC.-7043510

PATIENT
  Sex: Female
  Weight: 73 kg

DRUGS (9)
  1. OXYCODONE [Concomitant]
  2. REBIF [Suspect]
     Indication: MULTIPLE SCLEROSIS
     Dates: start: 20090101
  3. GABAPENTIN [Concomitant]
  4. PROVIGIL [Concomitant]
  5. OXYCONTIN [Concomitant]
  6. BACLOFEN [Concomitant]
  7. RITALIN [Concomitant]
  8. DOCUSATE SODIUM [Concomitant]
  9. AMBIEN [Concomitant]

REACTIONS (2)
  - DIABETES MELLITUS [None]
  - HEPATIC STEATOSIS [None]
